FAERS Safety Report 19672746 (Version 5)
Quarter: 2024Q4

REPORT INFORMATION
  Report Type: Report from Study
  Country: US (occurrence: US)
  Receive Date: 20210809
  Receipt Date: 20241008
  Transmission Date: 20250114
  Serious: Yes (Hospitalization, Other)
  Sender: NOVARTIS
  Company Number: NVSC2021US174218

PATIENT
  Sex: Male
  Weight: 102.97 kg

DRUGS (9)
  1. COSENTYX [Suspect]
     Active Substance: SECUKINUMAB
     Indication: Psoriasis
     Dosage: 300 MG, QMO (INJECTION NOS)
     Route: 065
     Dates: start: 20190618
  2. COSENTYX [Suspect]
     Active Substance: SECUKINUMAB
     Dosage: 150 MG, QMO (INJECTION NOS)
     Route: 065
     Dates: start: 20190619
  3. COSENTYX [Suspect]
     Active Substance: SECUKINUMAB
     Dosage: 300 MG, QMO (INJECTION NOS)
     Route: 065
     Dates: start: 20210723, end: 20221118
  4. COSENTYX [Suspect]
     Active Substance: SECUKINUMAB
     Dosage: 300 MG, QMO (INJECTION NOS)
     Route: 065
     Dates: start: 20230215
  5. CLOBETASOL [Concomitant]
     Active Substance: CLOBETASOL
     Indication: Psoriasis
     Dosage: UNK, BID (HIGH STRENGTH)
     Route: 061
     Dates: start: 20141101
  6. CLOBETASOL [Concomitant]
     Active Substance: CLOBETASOL
     Dosage: UNK, QD (HIGH STRENGTH)
     Route: 061
  7. DOVONEX [Concomitant]
     Active Substance: CALCIPOTRIENE
     Indication: Psoriasis
     Dosage: UNK, BID (BID ON WEEK DAYS)
     Route: 061
     Dates: start: 20170201
  8. ALUMINUM CHLORIDE [Concomitant]
     Active Substance: ALUMINUM CHLORIDE
     Indication: Product used for unknown indication
     Dosage: UNK, QD
     Route: 061
     Dates: start: 20181201
  9. TRETINOIN [Concomitant]
     Active Substance: TRETINOIN
     Indication: Product used for unknown indication
     Dosage: UNK, OTHER (DAILY QHS)
     Route: 065

REACTIONS (9)
  - Cellulitis [Recovered/Resolved]
  - Pyrexia [Recovered/Resolved]
  - Chills [Recovered/Resolved]
  - Skin oedema [Recovered/Resolved]
  - Rash [Recovered/Resolved]
  - Panniculitis [Recovered/Resolved]
  - Tooth infection [Unknown]
  - Cholelithiasis [Unknown]
  - Liver disorder [Unknown]

NARRATIVE: CASE EVENT DATE: 20210323
